FAERS Safety Report 6544816-4 (Version None)
Quarter: 2010Q1

REPORT INFORMATION
  Report Type: 
  Country: None (occurrence: None)
  Receive Date: 20100115
  Receipt Date: 20091231
  Transmission Date: 20100710
  Serious: Yes (Hospitalization, Other)
  Sender: FDA-Public Use
  Company Number: AUR-APL-2009-01705

PATIENT
  Age: 14 Year
  Sex: Male

DRUGS (1)
  1. RISPERIDONE [Suspect]
     Indication: PSYCHOTIC BEHAVIOUR
     Dosage: 1MG, DAILY, ORAL
     Route: 048

REACTIONS (5)
  - HAEMOGLOBIN S INCREASED [None]
  - LEUKOCYTOSIS [None]
  - PENILE VASCULAR DISORDER [None]
  - PRIAPISM [None]
  - PYREXIA [None]
